FAERS Safety Report 10393247 (Version 2)
Quarter: 2015Q1

REPORT INFORMATION
  Report Type: Spontaneous
  Country: GB (occurrence: GB)
  Receive Date: 20140819
  Receipt Date: 20150303
  Transmission Date: 20150720
  Serious: Yes (Other)
  Sender: FDA-Public Use
  Company Number: GB-009507513-1408GBR008867

PATIENT
  Age: 6 Decade
  Sex: Male

DRUGS (6)
  1. DERMOL (BENZALKONIUM CHLORIDE (+) CHLORHEXIDINE HYDROCHLORIDE (+) ISOP [Concomitant]
     Dosage: DOSAGE FORM: CREAM
     Dates: start: 20140501, end: 20140522
  2. TEMOVATE [Concomitant]
     Active Substance: CLOBETASOL PROPIONATE
     Indication: RASH
     Dosage: DOSAGE FORM: CREAM, 30 UNITS UNSPECIFIED
     Route: 061
     Dates: start: 20140501, end: 20140522
  3. PEGINTERFERON ALFA-2A [Suspect]
     Active Substance: PEGINTERFERON ALFA-2A
     Indication: HEPATITIS C
     Dosage: DOSAGE FORM: UNSPECIFIED
     Route: 058
     Dates: start: 20140208
  4. HYDROCORTISONE. [Concomitant]
     Active Substance: HYDROCORTISONE
     Indication: RASH
     Dosage: DOSAGE FORM: CREAM, 1%
     Route: 061
     Dates: start: 20140320, end: 20140501
  5. RIBAVIRIN. [Suspect]
     Active Substance: RIBAVIRIN
     Indication: HEPATITIS C
     Dosage: 600 MG, BID
     Route: 048
     Dates: start: 20140208
  6. TELAPREVIR [Suspect]
     Active Substance: TELAPREVIR
     Indication: HEPATITIS C
     Dosage: 1125 MG, TWICE EVERY TWO DAYS
     Route: 048
     Dates: start: 20140206, end: 20140501

REACTIONS (1)
  - Rash [Recovered/Resolved with Sequelae]

NARRATIVE: CASE EVENT DATE: 20140501
